FAERS Safety Report 16141748 (Version 2)
Quarter: 2019Q2

REPORT INFORMATION
  Report Type: Report from Study
  Country: FR (occurrence: FR)
  Receive Date: 20190401
  Receipt Date: 20190508
  Transmission Date: 20190711
  Serious: Yes (Death)
  Sender: FDA-Public Use
  Company Number: FR-EXELIXIS-XL18419019852

PATIENT
  Age: 66 Year
  Sex: Male

DRUGS (1)
  1. CABOZANTINIB [Suspect]
     Active Substance: CABOZANTINIB
     Indication: RENAL CELL CARCINOMA
     Dosage: 60 MG, QD
     Route: 048
     Dates: start: 20161128, end: 20170110

REACTIONS (3)
  - Vomiting [Recovered/Resolved]
  - Renal impairment [Fatal]
  - Cardiac failure [Fatal]

NARRATIVE: CASE EVENT DATE: 201612
